FAERS Safety Report 17847743 (Version 5)
Quarter: 2020Q3

REPORT INFORMATION
  Report Type: Report from Study
  Country: None (occurrence: GR)
  Receive Date: 20200601
  Receipt Date: 20200831
  Transmission Date: 20201103
  Serious: Yes (Hospitalization, Other)
  Sender: FDA-Public Use
  Company Number: GR-ABBVIE-20P-066-3418679-00

PATIENT
  Age: 78 Year
  Sex: Female
  Weight: 69 kg

DRUGS (10)
  1. IDEOS [Concomitant]
     Active Substance: CALCIUM CARBONATE\CHOLECALCIFEROL
     Indication: STEROID THERAPY
  2. LOSEC [Concomitant]
     Active Substance: OMEPRAZOLE
     Indication: STEROID THERAPY
     Route: 048
     Dates: start: 20191102
  3. ZALDIAR [Concomitant]
     Active Substance: ACETAMINOPHEN\TRAMADOL HYDROCHLORIDE
     Indication: SPINAL FRACTURE
     Dosage: 37.5/ 325 MILLIGRAM
     Route: 048
     Dates: start: 20200127, end: 20200720
  4. CYMBALTA [Concomitant]
     Active Substance: DULOXETINE HYDROCHLORIDE
     Indication: ANXIETY DISORDER
     Route: 048
     Dates: start: 20150101
  5. IDEOS [Concomitant]
     Active Substance: CALCIUM CARBONATE\CHOLECALCIFEROL
     Indication: OSTEOPOROSIS PROPHYLAXIS
     Dosage: 500/400 MILLIGRAM
     Route: 048
     Dates: start: 20191102
  6. LOSEC [Concomitant]
     Active Substance: OMEPRAZOLE
     Indication: GASTROINTESTINAL DISORDER PROPHYLAXIS
  7. UPADACITINIB [Suspect]
     Active Substance: UPADACITINIB
     Indication: GIANT CELL ARTERITIS
     Route: 048
     Dates: start: 20191211, end: 20200523
  8. PREDNISOLONE. [Suspect]
     Active Substance: PREDNISOLONE
     Indication: GIANT CELL ARTERITIS
     Dosage: 26?WK CS TAPER
     Route: 048
     Dates: start: 20200122, end: 20200624
  9. PREDNISOLONE. [Suspect]
     Active Substance: PREDNISOLONE
     Indication: GIANT CELL ARTERITIS
     Dosage: PER CS OPEN?LABEL TAPER SCHEDULE
     Route: 048
     Dates: start: 20191211, end: 20200121
  10. ACLASTA [Concomitant]
     Active Substance: ZOLEDRONIC ACID
     Indication: SPINAL FRACTURE
     Route: 042
     Dates: start: 20200210

REACTIONS (1)
  - Intervertebral discitis [Not Recovered/Not Resolved]

NARRATIVE: CASE EVENT DATE: 20200520
